FAERS Safety Report 8797026 (Version 2)
Quarter: 2012Q4

REPORT INFORMATION
  Report Type: 
  Country: US (occurrence: US)
  Receive Date: 20120919
  Receipt Date: 20121006
  Transmission Date: 20130627
  Serious: Yes (Other)
  Sender: FDA-Public Use
  Company Number: US-AMGEN-USASP2012058523

PATIENT
  Age: 60 Year
  Sex: Female
  Weight: 86.17 kg

DRUGS (8)
  1. PROLIA [Suspect]
     Indication: OSTEOPOROSIS POSTMENOPAUSAL
     Dosage: UNK
     Dates: start: 2010, end: 201109
  2. ERYTHROMYCIN [Concomitant]
     Indication: ROSACEA
  3. VITAMIN D /00107901/ [Concomitant]
     Dosage: 2000 IU, qd
  4. POTASSIUM [Concomitant]
  5. SYNTHROID [Concomitant]
     Indication: HYPOTHYROIDISM
  6. TRIAMTERENE/HCTZ [Concomitant]
  7. MULTIVITAMIN                       /00097801/ [Concomitant]
  8. BABY ASPIRIN [Concomitant]

REACTIONS (4)
  - Hip fracture [Unknown]
  - Femur fracture [Unknown]
  - Cholecystectomy [Unknown]
  - N-telopeptide urine decreased [Unknown]
